FAERS Safety Report 8912564 (Version 2)
Quarter: 2012Q4

REPORT INFORMATION
  Report Type: 
  Country: US (occurrence: US)
  Receive Date: 20121116
  Receipt Date: 20121220
  Transmission Date: 20130627
  Serious: Yes (Hospitalization, Other)
  Sender: FDA-Public Use
  Company Number: US-MPIJNJ-2012-08060

PATIENT
  Age: 72 Year
  Sex: Male

DRUGS (1)
  1. VELCADE [Suspect]
     Indication: AMYLOIDOSIS
     Dosage: 1.3 mg/m2, Cyclic
     Route: 058
     Dates: start: 20121031, end: 20121106

REACTIONS (3)
  - Hospitalisation [Unknown]
  - Blister [Recovering/Resolving]
  - Off label use [Unknown]
